FAERS Safety Report 8329719-7 (Version None)
Quarter: 2012Q2

REPORT INFORMATION
  Report Type: 
  Country: None (occurrence: None)
  Receive Date: 20120502
  Receipt Date: 20120426
  Transmission Date: 20120825
  Serious: Yes (Other)
  Sender: FDA-Public Use
  Company Number: JP-GLAXOSMITHKLINE-B0798814A

PATIENT
  Sex: Male

DRUGS (5)
  1. DUTASTERIDE [Concomitant]
     Route: 048
  2. ALLERMIST [Suspect]
     Indication: PRODUCT USED FOR UNKNOWN INDICATION
     Route: 045
     Dates: start: 20120202
  3. LANSOPRAZOLE [Concomitant]
     Dosage: 15MG PER DAY
     Route: 048
  4. CONIEL [Concomitant]
     Route: 048
  5. CELESTAMINE TAB [Concomitant]
     Route: 048

REACTIONS (3)
  - HYPOAESTHESIA ORAL [None]
  - TONGUE PARALYSIS [None]
  - PARAESTHESIA ORAL [None]
